FAERS Safety Report 7679175-7 (Version None)
Quarter: 2011Q3

REPORT INFORMATION
  Report Type: 
  Country: None (occurrence: None)
  Receive Date: 20110812
  Receipt Date: 20110802
  Transmission Date: 20111222
  Serious: Yes (Death, Life-Threatening)
  Sender: FDA-Public Use
  Company Number: NL-GENZYME-CLOF-1001152

PATIENT
  Sex: Male
  Weight: 73.9 kg

DRUGS (20)
  1. FIBRINOGEN [Concomitant]
     Indication: PRODUCT USED FOR UNKNOWN INDICATION
     Dosage: UNK
     Route: 065
     Dates: start: 20100820, end: 20100821
  2. EVOLTRA [Suspect]
     Indication: ACUTE MYELOID LEUKAEMIA
     Dosage: 28 MG, QD
     Route: 042
     Dates: start: 20100708, end: 20100712
  3. PANTAZOL [Concomitant]
     Indication: PROPHYLAXIS
     Dosage: UNK
     Route: 065
     Dates: start: 20100810, end: 20100824
  4. DI-ADRESON F [Concomitant]
     Indication: HISTIOCYTOSIS HAEMATOPHAGIC
     Dosage: UNK
     Route: 065
     Dates: start: 20100819, end: 20100822
  5. SPIRONOLACTONE [Concomitant]
     Indication: OEDEMA
  6. KALIUMCHLORIDE [Concomitant]
     Indication: BLOOD POTASSIUM DECREASED
     Dosage: 20 MMOL/L, TID
     Route: 048
     Dates: start: 20100817, end: 20100822
  7. CASPOFUNGIN ACETATE [Concomitant]
     Indication: FUNGAL TEST POSITIVE
     Dosage: 750 MG, TID
     Route: 042
     Dates: start: 20100812, end: 20100821
  8. ACYCLOVIR [Concomitant]
     Indication: HERPES SIMPLEX
     Dosage: UNK
     Route: 065
     Dates: start: 20100820, end: 20100821
  9. ACETAMINOPHEN [Concomitant]
     Indication: PYREXIA
     Dosage: 500 MG, UNK
     Route: 065
     Dates: start: 20100810, end: 20100824
  10. ACYCLOVIR [Concomitant]
     Indication: PROPHYLAXIS
  11. LEUCOVORIN CALCIUM [Concomitant]
     Indication: TOXOPLASMOSIS
     Dosage: UNK
     Route: 065
     Dates: end: 20100824
  12. PLATELETS, CONCENTRATED [Concomitant]
     Indication: PRODUCT USED FOR UNKNOWN INDICATION
     Dosage: UNK
     Route: 065
     Dates: start: 20100708, end: 20100824
  13. IDARUBICIN HYDROCHLORIDE [Suspect]
     Indication: ACUTE MYELOID LEUKAEMIA
     Dosage: 19 MG, D 1, 3, 5
     Route: 042
     Dates: start: 20100707, end: 20100711
  14. CIPROFLAXACIN [Concomitant]
     Indication: PROPHYLAXIS
     Dosage: 500 MG, BID
     Route: 048
     Dates: start: 20100810, end: 20100820
  15. SPIRONOLACTONE [Concomitant]
     Indication: PLEURAL EFFUSION
  16. CYTARABINE [Suspect]
     Indication: ACUTE MYELOID LEUKAEMIA
     Dosage: 190 MG, QD
     Route: 042
     Dates: start: 20100707, end: 20100716
  17. VANCOMYCIN [Concomitant]
     Indication: BACTERAEMIA
     Dosage: 1250 MG, UNK
     Route: 042
     Dates: start: 20100814, end: 20100817
  18. CASPOFUNGIN ACETATE [Concomitant]
     Indication: CAECITIS
  19. SPIRONOLACTONE [Concomitant]
     Indication: ASCITES
     Dosage: UNK
     Route: 065
     Dates: end: 20100820
  20. SULFADIAZINE [Concomitant]
     Indication: PRODUCT USED FOR UNKNOWN INDICATION
     Dosage: UNK
     Route: 065
     Dates: end: 20100823

REACTIONS (6)
  - FEBRILE NEUTROPENIA [None]
  - PANCYTOPENIA [None]
  - CEREBRAL HAEMORRHAGE [None]
  - CLOSTRIDIAL INFECTION [None]
  - INFECTION [None]
  - CEREBRAL FUNGAL INFECTION [None]
